FAERS Safety Report 6007918-7 (Version None)
Quarter: 2008Q4

REPORT INFORMATION
  Report Type: 
  Country: None (occurrence: None)
  Receive Date: 20081217
  Receipt Date: 20080610
  Transmission Date: 20090506
  Serious: No
  Sender: FDA-Public Use
  Company Number: US-ASTRAZENECA-2008UW11668

PATIENT
  Age: 70 Year
  Sex: Male

DRUGS (5)
  1. CRESTOR [Suspect]
     Route: 048
  2. CELEBREX [Concomitant]
  3. ACIPHEX [Concomitant]
  4. ALLOPURINOL [Concomitant]
  5. ATENOLOL [Concomitant]

REACTIONS (3)
  - BREAST MASS [None]
  - BREAST SWELLING [None]
  - GYNAECOMASTIA [None]
